FAERS Safety Report 12873057 (Version 1)
Quarter: 2016Q4

REPORT INFORMATION
  Report Type: Spontaneous
  Country: GR (occurrence: GR)
  Receive Date: 20161021
  Receipt Date: 20161021
  Transmission Date: 20170207
  Serious: Yes (Death, Hospitalization)
  Sender: FDA-Public Use
  Company Number: GR-ASTRAZENECA-2016SF09977

PATIENT
  Age: 69 Year
  Sex: Male
  Weight: 75 kg

DRUGS (2)
  1. BRETARIS GENUAIR [Suspect]
     Active Substance: ACLIDINIUM BROMIDE
     Dosage: TWO TIMES A DAY
     Route: 055
     Dates: start: 20150403, end: 20160515
  2. ONBREZ [Suspect]
     Active Substance: INDACATEROL
     Dosage: DAILY
     Route: 055
     Dates: start: 20150403, end: 20160515

REACTIONS (4)
  - Sepsis [Fatal]
  - Nosocomial infection [Unknown]
  - Wheezing [Unknown]
  - Respiratory failure [Unknown]

NARRATIVE: CASE EVENT DATE: 20160515
